FAERS Safety Report 8460204-8 (Version None)
Quarter: 2012Q2

REPORT INFORMATION
  Report Type: 
  Country: None (occurrence: None)
  Receive Date: 20120323
  Receipt Date: 20110908
  Transmission Date: 20120825
  Serious: Yes (Other)
  Sender: FDA-Public Use
  Company Number: 163-21880-11091439

PATIENT
  Age: 85 Year
  Sex: Female
  Weight: 72.1219 kg

DRUGS (18)
  1. LEVOTHYROXINE SODIUM [Concomitant]
  2. POTASSIUM CHLORIDE [Concomitant]
  3. LIDOCAINE [Concomitant]
  4. SIMVASTATIN [Concomitant]
  5. FOLIC ACID [Concomitant]
  6. FUROSEMIDE [Concomitant]
  7. PREDNISONE TAB [Concomitant]
  8. ACYCLOVIR [Concomitant]
  9. MAGNESIUM (MAGNESIUM) [Concomitant]
  10. FLUCONAZOLE [Concomitant]
  11. OCUVITE (OCUVITE) [Concomitant]
  12. MULTIVITAMIN [Concomitant]
  13. REVLIMID [Suspect]
     Indication: MYELODYSPLASTIC SYNDROME
     Dosage: 10 MG, 1 IN 1 D, PO, 5 MG, DAILY X 21 DAYS, PO
     Route: 048
     Dates: start: 20110816
  14. REVLIMID [Suspect]
     Indication: MYELODYSPLASTIC SYNDROME
     Dosage: 10 MG, 1 IN 1 D, PO, 5 MG, DAILY X 21 DAYS, PO
     Route: 048
     Dates: start: 20110701
  15. CEPHALEXIN [Concomitant]
  16. CALCIUM CARBONATE [Concomitant]
  17. XALATAN [Concomitant]
  18. ZINC (ZINC) [Concomitant]

REACTIONS (1)
  - SPINAL COMPRESSION FRACTURE [None]
